FAERS Safety Report 5899380-X (Version None)
Quarter: 2008Q3

REPORT INFORMATION
  Report Type: 
  Country: None (occurrence: None)
  Receive Date: 20080924
  Receipt Date: 20080916
  Transmission Date: 20090109
  Serious: Yes (Death, Life-Threatening)
  Sender: FDA-Public Use
  Company Number: US024637

PATIENT

DRUGS (1)
  1. ACTIQ [Suspect]
     Dosage: BUCCAL
     Route: 002

REACTIONS (3)
  - ACCIDENTAL OVERDOSE [None]
  - DRUG ABUSE [None]
  - INTENTIONAL DRUG MISUSE [None]
